FAERS Safety Report 7166491-0 (Version None)
Quarter: 2010Q4

REPORT INFORMATION
  Report Type: 
  Country: None (occurrence: None)
  Receive Date: 20101216
  Receipt Date: 20101209
  Transmission Date: 20110411
  Serious: Yes (Other)
  Sender: FDA-Public Use
  Company Number: BR-BRISTOL-MYERS SQUIBB COMPANY-15440324

PATIENT
  Age: 16 Year
  Sex: Male
  Weight: 100 kg

DRUGS (4)
  1. ABILIFY [Suspect]
     Indication: OBSESSIVE-COMPULSIVE DISORDER
     Dosage: (ONCE IN THE MORNING AND ONCE IN THE EVENING)
     Route: 048
     Dates: start: 20080101
  2. LAMICTAL [Suspect]
     Indication: DEPRESSION
     Dosage: THERAPY STOPPED FOR SEVERAL DAYS AND THEN REINTRODUCED AT A DOSAGE OF 10 AND AGAIN INTERRUPTED.
  3. CARBOLITIUM [Concomitant]
  4. ANAFRANIL [Concomitant]
     Dosage: 75MG AND 25MG

REACTIONS (3)
  - DEPRESSED MOOD [None]
  - DRUG INEFFECTIVE [None]
  - PSYCHOTIC DISORDER [None]
